FAERS Safety Report 6669390-3 (Version None)
Quarter: 2010Q2

REPORT INFORMATION
  Report Type: 
  Country: None (occurrence: None)
  Receive Date: 20100406
  Receipt Date: 20100329
  Transmission Date: 20101027
  Serious: Yes (Death)
  Sender: FDA-Public Use
  Company Number: B0640996A

PATIENT
  Age: 22 Year
  Sex: Male

DRUGS (19)
  1. MELPHALAN HYDROCHLORIDE [Suspect]
     Indication: IMMUNOSUPPRESSION
     Dosage: 70MGM2 PER DAY
     Route: 042
  2. MELPHALAN HYDROCHLORIDE [Suspect]
     Dosage: 70MGM2 PER DAY
     Route: 042
  3. FLUDARABINE PHOSPHATE [Suspect]
     Indication: IMMUNOSUPPRESSION
     Dosage: 30MGM2 PER DAY
     Route: 042
  4. FLUDARABINE PHOSPHATE [Suspect]
     Dosage: 30MGM2 PER DAY
     Route: 042
  5. FLUDARABINE PHOSPHATE [Suspect]
     Dosage: 30MGM2 PER DAY
     Route: 042
  6. FLUDARABINE PHOSPHATE [Suspect]
     Dosage: 30MGM2 PER DAY
     Route: 042
  7. FLUDARABINE PHOSPHATE [Suspect]
     Dosage: 30MGM2 PER DAY
     Route: 042
  8. CAMPATH [Suspect]
     Indication: T-CELL DEPLETION
     Dosage: 10MG PER DAY
     Route: 042
  9. CAMPATH [Suspect]
     Dosage: 10MG PER DAY
     Route: 042
  10. CAMPATH [Suspect]
     Dosage: 10MG PER DAY
     Route: 042
  11. CYCLOSPORINE [Concomitant]
     Indication: PROPHYLAXIS AGAINST GRAFT VERSUS HOST DISEASE
  12. METHOTREXATE [Concomitant]
     Indication: PROPHYLAXIS AGAINST GRAFT VERSUS HOST DISEASE
  13. RECOMBINANT FACTOR VIII [Concomitant]
     Indication: PROPHYLAXIS
  14. UNKNOWN [Concomitant]
  15. UNKNOWN [Concomitant]
  16. UNKNOWN [Concomitant]
  17. UNKNOWN [Concomitant]
  18. UNKNOWN [Concomitant]
  19. TRANEXAMIC ACID [Concomitant]

REACTIONS (2)
  - CARDIAC ARREST [None]
  - KLEBSIELLA SEPSIS [None]
